FAERS Safety Report 6006769-7 (Version None)
Quarter: 2008Q4

REPORT INFORMATION
  Report Type: 
  Country: None (occurrence: None)
  Receive Date: 20081217
  Receipt Date: 20081205
  Transmission Date: 20090506
  Serious: Yes (Other)
  Sender: FDA-Public Use
  Company Number: PHHY2008DE31094

PATIENT
  Sex: Female

DRUGS (1)
  1. FEMARA [Suspect]
     Indication: BREAST CANCER
     Dosage: UNK
     Route: 048
     Dates: start: 20071101, end: 20081001

REACTIONS (7)
  - GAIT DISTURBANCE [None]
  - JAW DISORDER [None]
  - NEUROPATHY PERIPHERAL [None]
  - OSTEOPOROSIS [None]
  - PARAESTHESIA [None]
  - PERIODONTITIS [None]
  - SENSORY DISTURBANCE [None]
